FAERS Safety Report 8821738 (Version 1)
Quarter: 2012Q4

REPORT INFORMATION
  Report Type: 
  Country: US (occurrence: US)
  Receive Date: 20121002
  Receipt Date: 20121002
  Transmission Date: 20130627
  Serious: No
  Sender: FDA-Public Use
  Company Number: US-VERTEX PHARMACEUTICAL INC.-2012-020669

PATIENT
  Age: 55 Year
  Sex: Male

DRUGS (7)
  1. VX-950 [Suspect]
     Indication: HEPATITIS C
     Dosage: 750 mg, tid
     Route: 048
  2. PEGASYS [Suspect]
     Indication: HEPATITIS C
     Dosage: 180 ?g, UNK
  3. RIBAVIRIN [Concomitant]
     Dosage: 200 mg, UNK
  4. VERAPAMIL [Concomitant]
     Dosage: 240 mg, UNK
  5. HYDROCO/APAP [Concomitant]
  6. MULTIVITAMIN                       /00097801/ [Concomitant]
  7. BENICAR [Concomitant]
     Dosage: 40 mg, UNK

REACTIONS (1)
  - Injection site erythema [Unknown]
